FAERS Safety Report 8549434-4 (Version None)
Quarter: 2012Q3

REPORT INFORMATION
  Report Type: 
  Country: None (occurrence: None)
  Receive Date: 20120730
  Receipt Date: 20120720
  Transmission Date: 20120928
  Serious: Yes (Hospitalization, Disabling, Other)
  Sender: FDA-Public Use
  Company Number: US-009507513-1203USA03472

PATIENT

DRUGS (4)
  1. FOSAMAX [Suspect]
     Route: 048
     Dates: start: 20020901, end: 20080101
  2. FOSAMAX [Suspect]
     Indication: OSTEOPOROSIS
     Dosage: 70 MG, QW
     Route: 048
     Dates: start: 20050214, end: 20080109
  3. ALENDRONATE SODIUM [Suspect]
     Indication: OSTEOPOROSIS
     Dosage: 70 MG, QW
     Route: 048
     Dates: start: 20080201, end: 20100401
  4. FOSAMAX [Suspect]
     Dosage: 10 MG, QD
     Dates: start: 19980201

REACTIONS (21)
  - JOINT INJURY [None]
  - FALL [None]
  - FEMUR FRACTURE [None]
  - LOW TURNOVER OSTEOPATHY [None]
  - TOOTH DISORDER [None]
  - ANOSMIA [None]
  - OSTEOARTHRITIS [None]
  - FATIGUE [None]
  - OSTEOPOROSIS [None]
  - ANKLE FRACTURE [None]
  - VITAMIN D DEFICIENCY [None]
  - TIBIA FRACTURE [None]
  - ADJUSTMENT DISORDER [None]
  - UPPER RESPIRATORY TRACT INFECTION [None]
  - PARATHYROID DISORDER [None]
  - ANAEMIA MACROCYTIC [None]
  - HEADACHE [None]
  - PAIN IN EXTREMITY [None]
  - SUICIDAL IDEATION [None]
  - GASTROOESOPHAGEAL REFLUX DISEASE [None]
  - HAND FRACTURE [None]
